FAERS Safety Report 9360485 (Version 3)
Quarter: 2013Q3

REPORT INFORMATION
  Report Type: Spontaneous
  Country: JP (occurrence: JP)
  Receive Date: 20130621
  Receipt Date: 20130708
  Transmission Date: 20140515
  Serious: No
  Sender: FDA-Public Use
  Company Number: JP-JNJFOC-20130604831

PATIENT
  Sex: 0

DRUGS (1)
  1. DUROTEP MT [Suspect]
     Indication: PAIN
     Route: 062

REACTIONS (1)
  - Feeling abnormal [Unknown]
